FAERS Safety Report 24575510 (Version 1)
Quarter: 2024Q4

REPORT INFORMATION
  Report Type: Spontaneous
  Country: IN (occurrence: IN)
  Receive Date: 20241104
  Receipt Date: 20241104
  Transmission Date: 20250115
  Serious: Yes (Death)
  Sender: IPSEN BIOPHARMACEUTICALS, INC.
  Company Number: IN-SERVIER-S24012686

PATIENT
  Age: 55 Year
  Sex: Female

DRUGS (5)
  1. ONIVYDE [Suspect]
     Active Substance: IRINOTECAN HYDROCHLORIDE
     Indication: Pancreatic carcinoma
     Dosage: UNK
     Route: 065
  2. ONIVYDE [Suspect]
     Active Substance: IRINOTECAN HYDROCHLORIDE
     Dosage: UNK
     Route: 065
     Dates: start: 20241008, end: 20241008
  3. GRANISET [Concomitant]
     Indication: Product used for unknown indication
     Dosage: 1 MG, BID
     Route: 065
  4. PETIOL D [Concomitant]
     Indication: Product used for unknown indication
     Dosage: UNK, BID
     Route: 065
  5. XEROMED WET SPRAY FOR DRY MOUTH [Concomitant]
     Indication: Product used for unknown indication
     Dosage: UNK, BID
     Route: 065

REACTIONS (5)
  - Death [Fatal]
  - Vomiting [Unknown]
  - Asthenia [Unknown]
  - Dyspnoea [Unknown]
  - Drug ineffective [Recovered/Resolved]

NARRATIVE: CASE EVENT DATE: 20240915
